FAERS Safety Report 8298540-0 (Version None)
Quarter: 2012Q2

REPORT INFORMATION
  Report Type: 
  Country: None (occurrence: None)
  Receive Date: 20120419
  Receipt Date: 20120323
  Transmission Date: 20120825
  Serious: No
  Sender: FDA-Public Use
  Company Number: US-ABBOTT-12P-163-0921303-00

PATIENT
  Age: 10 Year
  Sex: Male
  Weight: 42.6 kg

DRUGS (3)
  1. LUPRON DEPOT-PED [Suspect]
     Indication: PRECOCIOUS PUBERTY
     Dosage: (11.25 MG + 7.5 MG = 18.75 MG) 1 IN 4 WK
     Dates: start: 20120201
  2. LUPRON DEPOT-PED [Suspect]
     Indication: PRECOCIOUS PUBERTY
     Dosage: (11.25 MG + 7.5 MG = 18.75 MG) 1 IN 4 WK
     Dates: start: 20120201
  3. LUPRON DEPOT-PED [Suspect]

REACTIONS (1)
  - DRUG EFFECT DECREASED [None]
